FAERS Safety Report 9601254 (Version 1)
Quarter: 2013Q4

REPORT INFORMATION
  Report Type: Spontaneous
  Country: AU (occurrence: US)
  Receive Date: 20131006
  Receipt Date: 20131006
  Transmission Date: 20140711
  Serious: Yes (Other)
  Sender: FDA-Public Use
  Company Number: AU-MYLANLABS-2013S1021618

PATIENT
  Sex: Male

DRUGS (4)
  1. TAPENTADOL [Suspect]
     Route: 065
  2. TIZANIDINE [Suspect]
     Route: 065
  3. FLUOXETINE [Suspect]
     Route: 065
  4. BUPROPION [Suspect]
     Route: 065

REACTIONS (5)
  - Serotonin syndrome [Unknown]
  - Aggression [Unknown]
  - Hypertension [Unknown]
  - Depersonalisation [Unknown]
  - Chills [Unknown]
